FAERS Safety Report 10743837 (Version 1)
Quarter: 2015Q1

REPORT INFORMATION
  Report Type: Report from Study
  Country: DE (occurrence: DE)
  Receive Date: 20150128
  Receipt Date: 20150128
  Transmission Date: 20150721
  Serious: Yes (Death)
  Sender: FDA-Public Use
  Company Number: DE-ROCHE-GNE236469

PATIENT
  Age: 68 Year
  Sex: Female
  Weight: 67.07 kg

DRUGS (1)
  1. RANIBIZUMAB [Suspect]
     Active Substance: RANIBIZUMAB
     Indication: AGE-RELATED MACULAR DEGENERATION
     Route: 050
     Dates: start: 20061031

REACTIONS (5)
  - Aortic rupture [None]
  - Aortic aneurysm rupture [Fatal]
  - Arteriosclerosis [Unknown]
  - Pericardial effusion [None]
  - Aortic aneurysm [Unknown]

NARRATIVE: CASE EVENT DATE: 20070206
